FAERS Safety Report 26044114 (Version 1)
Quarter: 2025Q4

REPORT INFORMATION
  Report Type: Report from Study
  Country: CA (occurrence: CA)
  Receive Date: 20251114
  Receipt Date: 20251114
  Transmission Date: 20260117
  Serious: Yes (Hospitalization, Other)
  Sender: CELLTRION
  Company Number: CA-CELLTRION INC.-2025CA040829

PATIENT

DRUGS (1)
  1. INFLIXIMAB-DYYB [Suspect]
     Active Substance: INFLIXIMAB-DYYB
     Indication: Colitis ulcerative
     Dosage: REMDANTRY - MAINTENANCE - 5 MG - IV  (INTRAVENOUS) EVERY 7 WEEKS
     Route: 042
     Dates: start: 20250520

REACTIONS (5)
  - COVID-19 [Unknown]
  - Dysstasia [Recovered/Resolved]
  - Asthenia [Unknown]
  - Fatigue [Unknown]
  - Intentional product use issue [Unknown]
